FAERS Safety Report 9110327 (Version 3)
Quarter: 2015Q1

REPORT INFORMATION
  Report Type: Spontaneous
  Country: US (occurrence: US)
  Receive Date: 20130222
  Receipt Date: 20150302
  Transmission Date: 20150721
  Serious: Yes (Hospitalization, Other)
  Sender: FDA-Public Use
  Company Number: US-BAYER-2013-018723

PATIENT
  Age: 22 Year
  Sex: Female
  Weight: 99.77 kg

DRUGS (2)
  1. MIRENA [Suspect]
     Active Substance: LEVONORGESTREL
     Indication: CONTRACEPTION
     Dosage: 20 MCG/24HR, CONT
     Route: 015
     Dates: start: 20120810, end: 20120928
  2. IBUPROFEN. [Concomitant]
     Active Substance: IBUPROFEN
     Indication: PAIN
     Dosage: 600 MG, UNK
     Route: 048

REACTIONS (8)
  - Device defective [None]
  - Uterine perforation [None]
  - Abdominal pain lower [None]
  - Genital haemorrhage [None]
  - Dysmenorrhoea [None]
  - Menorrhagia [None]
  - Migraine [None]
  - Device issue [None]

NARRATIVE: CASE EVENT DATE: 20120810
